FAERS Safety Report 20772666 (Version 1)
Quarter: 2022Q2

REPORT INFORMATION
  Report Type: Other
  Country: CA (occurrence: CA)
  Receive Date: 20220502
  Receipt Date: 20220502
  Transmission Date: 20220720
  Serious: Yes (Other)
  Sender: FDA-Public Use
  Company Number: CA-CELLTRION INC.-2022CA005075

PATIENT

DRUGS (3)
  1. TRUXIMA [Suspect]
     Active Substance: RITUXIMAB-ABBS
     Indication: Immune thrombocytopenia
     Dosage: 375 MG/M2, WEEKLY FOR 4 DOSES (QUANTITY: 4 X 500 MG VIALS + 16 X 100 MG VIALS = TOTAL 3600 MG)
  2. DAPSONE [Concomitant]
     Active Substance: DAPSONE
     Dosage: UNK
  3. DANAZOL [Concomitant]
     Active Substance: DANAZOL
     Dosage: UNK

REACTIONS (2)
  - Immune thrombocytopenia [Unknown]
  - Off label use [Unknown]
